FAERS Safety Report 8783909 (Version 1)
Quarter: 2012Q4

REPORT INFORMATION
  Report Type: Report from Study
  Country: US (occurrence: US)
  Receive Date: 20120913
  Receipt Date: 20120913
  Transmission Date: 20130627
  Serious: No
  Sender: FDA-Public Use
  Company Number: US-VERTEX PHARMACEUTICAL INC.-AE-2012-009294

PATIENT

DRUGS (10)
  1. INCIVEK [Suspect]
     Indication: HEPATITIS C
     Route: 048
  2. PEGASYS [Concomitant]
     Indication: HEPATITIS C
  3. RIBAVIRIN [Concomitant]
     Indication: HEPATITIS C
  4. PATADAY SOL [Concomitant]
  5. NASONEX SPR [Concomitant]
  6. ZYRTEC ALLGY [Concomitant]
  7. ALBUTEROL AER [Concomitant]
  8. SYMBICORT AER [Concomitant]
  9. VITAMIN C [Concomitant]
  10. MULTIVITAMIN [Concomitant]

REACTIONS (1)
  - Anorectal discomfort [Unknown]
